FAERS Safety Report 4715837-9 (Version None)
Quarter: 2005Q3

REPORT INFORMATION
  Report Type: 
  Country: None (occurrence: None)
  Receive Date: 20050715
  Receipt Date: 20050715
  Transmission Date: 20060218
  Serious: Yes (Hospitalization, Disabling, Other)
  Sender: FDA-Public Use
  Company Number: None

PATIENT
  Age: 30 Year
  Sex: Male
  Weight: 70.3075 kg

DRUGS (2)
  1. OXYCODONE HCL [Suspect]
     Indication: OBSESSIVE-COMPULSIVE DISORDER
     Dosage: 20 MG 2 X DAILY ORAL
     Route: 048
     Dates: start: 20040810, end: 20051210
  2. OXYCODONE HCL [Suspect]
     Indication: POST-TRAUMATIC STRESS DISORDER
     Dosage: 20 MG 2 X DAILY ORAL
     Route: 048
     Dates: start: 20040810, end: 20051210

REACTIONS (4)
  - BODY TEMPERATURE FLUCTUATION [None]
  - DRUG INEFFECTIVE [None]
  - MALAISE [None]
  - PHARMACEUTICAL PRODUCT COMPLAINT [None]
